FAERS Safety Report 13001443 (Version 4)
Quarter: 2017Q2

REPORT INFORMATION
  Report Type: Report from Study
  Country: US (occurrence: US)
  Receive Date: 20161206
  Receipt Date: 20170413
  Transmission Date: 20170830
  Serious: Yes (Hospitalization)
  Sender: FDA-Public Use
  Company Number: PHEH2016US031550

PATIENT
  Age: 74 Year
  Sex: Male
  Weight: 58.5 kg

DRUGS (3)
  1. ELIQUIS [Concomitant]
     Active Substance: APIXABAN
     Indication: ATRIAL FIBRILLATION
     Dosage: 5 MG, UNK
     Route: 065
     Dates: start: 20161024, end: 20170208
  2. ELIQUIS [Concomitant]
     Active Substance: APIXABAN
     Indication: CEREBELLAR INFARCTION
     Dosage: 5 MG, BID
     Route: 048
     Dates: start: 20161024, end: 20170220
  3. ENTRESTO [Suspect]
     Active Substance: SACUBITRIL\VALSARTAN
     Indication: CARDIAC FAILURE CONGESTIVE
     Dosage: 50 MG, BID
     Route: 048
     Dates: start: 20161015, end: 20170203

REACTIONS (4)
  - Vomiting [Unknown]
  - Nausea [Unknown]
  - Cerebellar infarction [Recovered/Resolved]
  - Dizziness [Unknown]

NARRATIVE: CASE EVENT DATE: 20161023
